FAERS Safety Report 10891021 (Version 1)
Quarter: 2015Q1

REPORT INFORMATION
  Report Type: Spontaneous
  Country: GR (occurrence: GR)
  Receive Date: 20150305
  Receipt Date: 20150305
  Transmission Date: 20150721
  Serious: Yes (Hospitalization)
  Sender: FDA-Public Use
  Company Number: GR-PFIZER INC-2015075066

PATIENT
  Age: 34 Year
  Sex: Male
  Weight: 62 kg

DRUGS (2)
  1. ZITHROMAX [Suspect]
     Active Substance: AZITHROMYCIN DIHYDRATE
     Indication: LARYNGITIS
     Dosage: 500 MG, EVERY 12 HOURS
     Route: 048
     Dates: start: 20150105, end: 20150107
  2. FILICINE [Concomitant]
     Indication: ASTIGMATISM
     Dosage: 5 MG, DAILY
     Route: 048

REACTIONS (7)
  - Emotional disorder [Recovering/Resolving]
  - Fatigue [Recovering/Resolving]
  - Fear [Recovering/Resolving]
  - Palpitations [Recovering/Resolving]
  - Acute stress disorder [Recovering/Resolving]
  - Tachycardia [Recovering/Resolving]
  - Panic attack [Recovering/Resolving]

NARRATIVE: CASE EVENT DATE: 20150107
